FAERS Safety Report 24288358 (Version 3)
Quarter: 2024Q4

REPORT INFORMATION
  Report Type: Report from Study
  Country: CN (occurrence: CN)
  Receive Date: 20240905
  Receipt Date: 20241003
  Transmission Date: 20250115
  Serious: Yes (Hospitalization)
  Sender: BEIGENE
  Company Number: CN-JIANGSUAOSAIKANG-2024ASK004000

PATIENT

DRUGS (10)
  1. TISLELIZUMAB [Suspect]
     Active Substance: TISLELIZUMAB
     Indication: Gastric cancer
     Dosage: 200 MILLIGRAM, Q3WK
     Route: 041
     Dates: start: 20240508, end: 20240701
  2. TISLELIZUMAB [Suspect]
     Active Substance: TISLELIZUMAB
     Dosage: 200 MILLIGRAM, Q3WK
     Route: 041
     Dates: start: 20240730, end: 20240730
  3. INVESTIGATIONAL PRODUCT [Suspect]
     Active Substance: INVESTIGATIONAL PRODUCT
     Indication: Gastric cancer
     Dosage: 6 MILLIGRAM/KILOGRAM, Q3WK
     Route: 041
     Dates: start: 20240508, end: 20240701
  4. INVESTIGATIONAL PRODUCT [Suspect]
     Active Substance: INVESTIGATIONAL PRODUCT
     Dosage: 6 MILLIGRAM/KILOGRAM, Q3WK
     Route: 041
     Dates: start: 20240730, end: 20240730
  5. OXALIPLATIN [Suspect]
     Active Substance: OXALIPLATIN
     Indication: Gastric cancer
     Dosage: 130MG/M2,EVERY 3 WEEKS
     Route: 041
     Dates: start: 20240508, end: 20240701
  6. OXALIPLATIN [Suspect]
     Active Substance: OXALIPLATIN
     Dosage: 130MG/M2,EVERY 3 WEEKS
     Route: 041
     Dates: start: 20240730, end: 20240730
  7. CAPECITABINE [Suspect]
     Active Substance: CAPECITABINE
     Indication: Gastric cancer
     Dosage: 1000 MG/M2, BID/D1-D14 PER CYCLE
     Route: 048
     Dates: start: 20240509, end: 20240522
  8. CAPECITABINE [Suspect]
     Active Substance: CAPECITABINE
     Dosage: 1000 MG/M2, BID/D1-D14 PER CYCLE
     Route: 048
     Dates: start: 20240731, end: 20240813
  9. CAPECITABINE [Suspect]
     Active Substance: CAPECITABINE
     Dosage: 1000 MG/M2, BID/D1-D14 PER CYCLE
     Route: 048
     Dates: start: 20240605, end: 20240618
  10. CAPECITABINE [Suspect]
     Active Substance: CAPECITABINE
     Dosage: 1000 MG/M2, BID/D1-D14 PER CYCLE
     Route: 048
     Dates: start: 20240703, end: 20240716

REACTIONS (1)
  - Hypokalaemia [Recovered/Resolved]

NARRATIVE: CASE EVENT DATE: 20240826
